FAERS Safety Report 24113850 (Version 3)
Quarter: 2024Q3

REPORT INFORMATION
  Report Type: Report from Study
  Country: US (occurrence: US)
  Receive Date: 20240720
  Receipt Date: 20240921
  Transmission Date: 20241016
  Serious: Yes (Death, Hospitalization)
  Sender: ARDELYX
  Company Number: US-ARDELYX-2024ARDX005088

PATIENT
  Age: 69 Year
  Sex: Female

DRUGS (3)
  1. XPHOZAH [Suspect]
     Active Substance: TENAPANOR HYDROCHLORIDE
     Indication: Chronic kidney disease
     Dosage: 20 MILLIGRAM, BID
     Route: 048
     Dates: start: 202404
  2. XPHOZAH [Suspect]
     Active Substance: TENAPANOR HYDROCHLORIDE
     Indication: Hyperphosphataemia
  3. MIDODRINE [Concomitant]
     Active Substance: MIDODRINE
     Indication: Hypertension
     Dosage: UNK
     Route: 065

REACTIONS (2)
  - Sepsis [Fatal]
  - Cardiac failure [Unknown]

NARRATIVE: CASE EVENT DATE: 20240601
